FAERS Safety Report 8844208 (Version 1)
Quarter: 2012Q4

REPORT INFORMATION
  Report Type: 
  Country: US (occurrence: US)
  Receive Date: 20121016
  Receipt Date: 20121016
  Transmission Date: 20130627
  Serious: No
  Sender: FDA-Public Use
  Company Number: US-B.I. PHARMACEUTICALS,INC./RIDGEFIELD-2011-BP-28708BP

PATIENT
  Age: 70 Year
  Sex: Female

DRUGS (10)
  1. PRADAXA [Suspect]
     Indication: ATRIAL FIBRILLATION
     Dosage: 300 mg
     Route: 048
     Dates: start: 20111215
  2. LYSINE [Concomitant]
     Indication: SUPPLEMENTATION THERAPY
     Dosage: 500 mg
     Route: 048
     Dates: start: 2009
  3. BIOTIN [Concomitant]
     Indication: SUPPLEMENTATION THERAPY
     Dosage: 1000 mEq
     Route: 048
     Dates: start: 2009
  4. MELATONIN [Concomitant]
     Indication: INSOMNIA
     Dosage: 10 mg
     Route: 048
     Dates: start: 2000
  5. PRAVASTATIN [Concomitant]
     Indication: BLOOD CHOLESTEROL INCREASED
     Dosage: 40 mg
     Route: 048
     Dates: start: 2006
  6. FISH OIL [Concomitant]
     Indication: CARDIAC DISORDER
     Dosage: 1200 mg
     Route: 048
     Dates: start: 2009
  7. QUINAPRIL [Concomitant]
     Indication: HYPERTENSION
     Dosage: 80 mg
     Route: 048
     Dates: start: 2002
  8. MEDROXY PROGESTERONE [Concomitant]
     Indication: HORMONE REPLACEMENT THERAPY
     Route: 048
     Dates: start: 1992
  9. PREMARIN [Concomitant]
     Indication: HORMONE REPLACEMENT THERAPY
     Dosage: 0.45 mg
     Route: 048
     Dates: start: 1992
  10. AMLODIPINE [Concomitant]
     Indication: HYPERTENSION
     Dosage: 5 mg
     Route: 048
     Dates: start: 2000

REACTIONS (3)
  - Contusion [Not Recovered/Not Resolved]
  - Incorrect dose administered [Recovered/Resolved]
  - Lyme disease [Not Recovered/Not Resolved]
